FAERS Safety Report 5994072-0 (Version None)
Quarter: 2008Q4

REPORT INFORMATION
  Report Type: 
  Country: None (occurrence: None)
  Receive Date: 20081212
  Receipt Date: 20080902
  Transmission Date: 20090506
  Serious: No
  Sender: FDA-Public Use
  Company Number: US-ABBOTT-08P-163-0473678-00

PATIENT
  Age: 56 Year
  Sex: Female
  Weight: 70.37 kg

DRUGS (5)
  1. HUMIRA [Suspect]
     Indication: CROHN'S DISEASE
     Route: 058
     Dates: start: 20070501, end: 20080601
  2. HUMIRA [Suspect]
     Indication: COLITIS ULCERATIVE
  3. METOPROLOL TARTRATE [Concomitant]
     Indication: HYPERTENSION
     Route: 048
     Dates: start: 20050101
  4. METOPROLOL TARTRATE [Concomitant]
     Indication: AORTIC RUPTURE
  5. CERTOLIZUMAB PEGOL [Concomitant]
     Indication: CROHN'S DISEASE
     Route: 050
     Dates: start: 20080701

REACTIONS (5)
  - CROHN'S DISEASE [None]
  - DIARRHOEA [None]
  - DRUG INEFFECTIVE [None]
  - INCONTINENCE [None]
  - PROCTALGIA [None]
